FAERS Safety Report 4342886-5 (Version None)
Quarter: 2004Q1

REPORT INFORMATION
  Report Type: 
  Country: None (occurrence: None)
  Receive Date: 20040325
  Receipt Date: 20040206
  Transmission Date: 20041129
  Serious: No
  Sender: FDA-Public Use
  Company Number: USA040258654

PATIENT
  Age: 57 Year
  Sex: Female
  Weight: 72 kg

DRUGS (5)
  1. FORTEO [Suspect]
     Indication: OSTEOPOROSIS
     Dosage: 20 UG/1 DAY
     Dates: start: 20040204, end: 20040205
  2. NOVOLOG [Concomitant]
  3. LANTUS [Concomitant]
  4. ADVAIR DISKUS 100/50 [Concomitant]
  5. COMBIVENT [Concomitant]

REACTIONS (5)
  - BACK PAIN [None]
  - BLOOD GLUCOSE DECREASED [None]
  - DIZZINESS [None]
  - HEADACHE [None]
  - PAIN IN EXTREMITY [None]
